FAERS Safety Report 5263921-6 (Version None)
Quarter: 2007Q1

REPORT INFORMATION
  Report Type: 
  Country: None (occurrence: None)
  Receive Date: 20070313
  Receipt Date: 20070306
  Transmission Date: 20070707
  Serious: Yes (Other)
  Sender: FDA-Public Use
  Company Number: US-ELI_LILLY_AND_COMPANY-US200703001330

PATIENT
  Age: 70 Year
  Sex: Female

DRUGS (3)
  1. HUMULIN L [Suspect]
     Indication: DIABETES MELLITUS
  2. HUMULIN N [Suspect]
     Indication: DIABETES MELLITUS
     Dosage: UNK, UNK
  3. HUMALOG [Suspect]
     Indication: DIABETES MELLITUS
     Dosage: UNK, UNK

REACTIONS (5)
  - CATARACT [None]
  - HYPERSENSITIVITY [None]
  - RETINAL HAEMORRHAGE [None]
  - URTICARIA [None]
  - VISUAL DISTURBANCE [None]
